FAERS Safety Report 11319126 (Version 5)
Quarter: 2016Q3

REPORT INFORMATION
  Report Type: Spontaneous
  Country: US (occurrence: US)
  Receive Date: 20150729
  Receipt Date: 20160908
  Transmission Date: 20161109
  Serious: Yes (Hospitalization)
  Sender: FDA-Public Use
  Company Number: US-ACTELION PHARMACEUTICALS US, INC.-A-US2015-116942

PATIENT
  Age: 56 Year
  Sex: Male

DRUGS (5)
  1. TYVASO [Concomitant]
     Active Substance: TREPROSTINIL
     Indication: PRODUCT USED FOR UNKNOWN INDICATION
     Dosage: 9 PUFF, QID
     Route: 055
  2. REMODULIN [Concomitant]
     Active Substance: TREPROSTINIL
     Route: 051
  3. OPSUMIT [Suspect]
     Active Substance: MACITENTAN
     Indication: PULMONARY ARTERIAL HYPERTENSION
     Dosage: 10 MG, QD
     Route: 048
     Dates: start: 20150423
  4. SILDENAFIL. [Concomitant]
     Active Substance: SILDENAFIL
     Dosage: 20 MG, TID
  5. COUMADIN [Concomitant]
     Active Substance: WARFARIN SODIUM

REACTIONS (9)
  - Chills [Unknown]
  - Headache [Unknown]
  - Migraine [Unknown]
  - Vomiting [Unknown]
  - Dyspnoea [Unknown]
  - Nausea [Unknown]
  - Depression [Unknown]
  - Photosensitivity reaction [Unknown]
  - Throat irritation [Unknown]
